FAERS Safety Report 7646667-6 (Version None)
Quarter: 2011Q3

REPORT INFORMATION
  Report Type: 
  Country: None (occurrence: None)
  Receive Date: 20110801
  Receipt Date: 20110728
  Transmission Date: 20111222
  Serious: Yes (Disabling, Other)
  Sender: FDA-Public Use
  Company Number: CA-BAYER-2011-065910

PATIENT
  Sex: Male

DRUGS (1)
  1. AVELOX [Suspect]
     Indication: SINUSITIS
     Dosage: UNK
     Route: 048
     Dates: start: 20110405

REACTIONS (9)
  - MOTOR DYSFUNCTION [None]
  - NERVOUS SYSTEM DISORDER [None]
  - TENDON PAIN [None]
  - INSOMNIA [None]
  - MITOCHONDRIAL DNA MUTATION [None]
  - SPINAL DISORDER [None]
  - VISUAL IMPAIRMENT [None]
  - MUSCLE SPASTICITY [None]
  - TENDONITIS [None]
